FAERS Safety Report 4880966-6 (Version None)
Quarter: 2005Q4

REPORT INFORMATION
  Report Type: 
  Country: None (occurrence: None)
  Receive Date: 20051223
  Receipt Date: 20051003
  Transmission Date: 20060501
  Serious: No
  Sender: FDA-Public Use
  Company Number: 05P-163-0312672-00

PATIENT
  Age: 63 Year
  Sex: Female
  Weight: 81.6475 kg

DRUGS (7)
  1. HUMIRA [Suspect]
     Indication: RHEUMATOID ARTHRITIS
     Dosage: 40 MG, 1 IN 1 D, SUBCUTANEOUS
     Route: 058
     Dates: start: 20050922
  2. PREMARA [Concomitant]
  3. FISH OIL [Concomitant]
  4. GARLIC [Concomitant]
  5. POLYCARBOPHIL CALCIUM [Concomitant]
  6. AMLODIPINE BESYLATE [Concomitant]
  7. NAPROXEN SODIUM [Concomitant]

REACTIONS (3)
  - BREAST INFECTION [None]
  - FUNGAL INFECTION [None]
  - LOCALISED INFECTION [None]
